FAERS Safety Report 14127050 (Version 3)
Quarter: 2017Q4

REPORT INFORMATION
  Report Type: Spontaneous
  Country: JP (occurrence: JP)
  Receive Date: 20171026
  Receipt Date: 20171218
  Transmission Date: 20180321
  Serious: Yes (Life-Threatening, Other)
  Sender: FDA-Public Use
  Company Number: JP-SUN PHARMACEUTICAL INDUSTRIES LTD-2017RR-153045

PATIENT
  Age: 67 Year
  Sex: Female

DRUGS (9)
  1. GAMMA GLOBULIN [Suspect]
     Active Substance: IMMUNE GLOBULIN NOS
     Indication: LYMPHOMA
     Dosage: HIGH-DOSE
     Route: 065
     Dates: start: 20170129
  2. DEXAMETHASONE. [Suspect]
     Active Substance: DEXAMETHASONE
     Indication: LYMPHOMA
  3. ELTROMBOPAG [Suspect]
     Active Substance: ELTROMBOPAG
     Indication: BICYTOPENIA
     Dosage: ESCALATED WEEKLY BY 12.5 MG PER DAY UP TO 50 MG PER DAY
     Route: 065
     Dates: start: 20160216, end: 20160223
  4. PREDNISOLONE. [Suspect]
     Active Substance: PREDNISOLONE
     Indication: BICYTOPENIA
     Dosage: 30 MG
     Route: 065
     Dates: start: 20160115
  5. RITUXIMAB. [Suspect]
     Active Substance: RITUXIMAB
     Indication: LYMPHOMA
  6. DEXAMETHASONE. [Suspect]
     Active Substance: DEXAMETHASONE
     Indication: BICYTOPENIA
     Dosage: HIGH-DOSE
     Route: 065
     Dates: start: 20160129
  7. GAMMA GLOBULIN [Suspect]
     Active Substance: IMMUNE GLOBULIN NOS
     Indication: BICYTOPENIA
  8. RITUXIMAB. [Suspect]
     Active Substance: RITUXIMAB
     Indication: BICYTOPENIA
     Dosage: HIGH-DOSE
     Route: 065
     Dates: start: 20160205
  9. ELTROMBOPAG [Suspect]
     Active Substance: ELTROMBOPAG
     Dosage: ESCALATED WEEKLY BY 12.5 MG PER DAY UP TO 50 MG PER DAY
     Route: 065

REACTIONS (1)
  - Drug ineffective [Unknown]

NARRATIVE: CASE EVENT DATE: 2016
